FAERS Safety Report 15189742 (Version 8)
Quarter: 2019Q2

REPORT INFORMATION
  Report Type: Report from Study
  Country: US (occurrence: US)
  Receive Date: 20180724
  Receipt Date: 20190509
  Transmission Date: 20190711
  Serious: Yes (Other)
  Sender: FDA-Public Use
  Company Number: PHEH2018US029795

PATIENT
  Age: 60 Year
  Sex: Female
  Weight: 49.89 kg

DRUGS (1)
  1. COSENTYX [Suspect]
     Active Substance: SECUKINUMAB
     Indication: PSORIASIS
     Dosage: 300 MG, QMO (Q4W)
     Route: 058
     Dates: start: 20180601

REACTIONS (6)
  - Feeling abnormal [Unknown]
  - Drug ineffective [Unknown]
  - Bladder cancer [Not Recovered/Not Resolved]
  - Bronchitis [Unknown]
  - Psoriasis [Unknown]
  - Dyspnoea [Unknown]

NARRATIVE: CASE EVENT DATE: 20181008
